FAERS Safety Report 5947133-6 (Version None)
Quarter: 2008Q4

REPORT INFORMATION
  Report Type: 
  Country: None (occurrence: None)
  Receive Date: 20081110
  Receipt Date: 20081030
  Transmission Date: 20090506
  Serious: Yes (Other)
  Sender: FDA-Public Use
  Company Number: US-JNJFOC-20080803721

PATIENT
  Sex: Female
  Weight: 94.35 kg

DRUGS (9)
  1. REMICADE [Suspect]
     Route: 042
  2. REMICADE [Suspect]
     Route: 042
  3. REMICADE [Suspect]
     Route: 042
  4. REMICADE [Suspect]
     Indication: RHEUMATOID ARTHRITIS
     Route: 042
  5. METHOTREXATE [Suspect]
     Indication: RHEUMATOID ARTHRITIS
  6. VALTREX [Concomitant]
  7. VICODEN [Concomitant]
     Indication: PAIN
  8. FOLIC ACID [Concomitant]
     Indication: RHEUMATOID ARTHRITIS
  9. GLIPIZIDE [Concomitant]
     Indication: DIABETES MELLITUS

REACTIONS (3)
  - CATARACT [None]
  - EYE DISORDER [None]
  - HERPES ZOSTER OPHTHALMIC [None]
